FAERS Safety Report 11608444 (Version 1)
Quarter: 2015Q4

REPORT INFORMATION
  Report Type: Spontaneous
  Country: BR (occurrence: BR)
  Receive Date: 20151007
  Receipt Date: 20151007
  Transmission Date: 20160304
  Serious: Yes (Death)
  Sender: FDA-Public Use
  Company Number: BR-MYLANLABS-2015M1033578

PATIENT

DRUGS (1)
  1. VALPROATE [Suspect]
     Active Substance: VALPROATE SODIUM
     Indication: EPILEPSY
     Dosage: 1500 MG/DAY
     Route: 064

REACTIONS (5)
  - Haemorrhage neonatal [Fatal]
  - Haemorrhagic disease of newborn [Fatal]
  - Maternal drugs affecting foetus [Fatal]
  - Neonatal gastrointestinal haemorrhage [Fatal]
  - Foetal exposure during pregnancy [Fatal]
